FAERS Safety Report 6107793-6 (Version None)
Quarter: 2009Q1

REPORT INFORMATION
  Report Type: 
  Country: None (occurrence: None)
  Receive Date: 20090309
  Receipt Date: 20090305
  Transmission Date: 20090719
  Serious: Yes (Hospitalization)
  Sender: FDA-Public Use
  Company Number: B0562046A

PATIENT
  Age: 11 Year
  Sex: Male

DRUGS (7)
  1. RELENZA [Suspect]
     Indication: DRUG USE FOR UNKNOWN INDICATION
     Dosage: 10MG TWICE PER DAY
     Route: 055
     Dates: start: 20090119, end: 20090119
  2. PREDONINE [Concomitant]
     Route: 048
  3. MEDICON [Concomitant]
     Dosage: 45MG PER DAY
     Route: 048
  4. MUCOSOLVAN [Concomitant]
     Dosage: 45MG PER DAY
     Route: 048
  5. HOKUNALIN [Concomitant]
     Dosage: 1MG PER DAY
     Route: 062
  6. INTAL [Concomitant]
  7. MEPTIN [Concomitant]

REACTIONS (3)
  - ASTHMA [None]
  - DYSPNOEA [None]
  - WHEEZING [None]
